FAERS Safety Report 14854996 (Version 1)
Quarter: 2018Q2

REPORT INFORMATION
  Report Type: Spontaneous
  Country: US (occurrence: US)
  Receive Date: 20180507
  Receipt Date: 20180507
  Transmission Date: 20180711
  Serious: No
  Sender: FDA-Public Use
  Company Number: US-ROCHE-1930553

PATIENT
  Sex: Female

DRUGS (1)
  1. ESBRIET [Suspect]
     Active Substance: PIRFENIDONE
     Indication: IDIOPATHIC PULMONARY FIBROSIS
     Dosage: TAKE 3 CAPSULES BY MOUTH THREE TIMES A DAY (801 MG)
     Route: 048
     Dates: start: 201702

REACTIONS (5)
  - Weight decreased [Unknown]
  - Nausea [Not Recovered/Not Resolved]
  - Hypophagia [Unknown]
  - Vomiting [Not Recovered/Not Resolved]
  - Insomnia [Unknown]
